FAERS Safety Report 6989347-2 (Version None)
Quarter: 2010Q3

REPORT INFORMATION
  Report Type: 
  Country: None (occurrence: None)
  Receive Date: 20100916
  Receipt Date: 20091120
  Transmission Date: 20110219
  Serious: Yes (Hospitalization, Other)
  Sender: FDA-Public Use
  Company Number: AU-PFIZER INC-2009291364

PATIENT
  Sex: Female

DRUGS (17)
  1. LYRICA [Suspect]
     Indication: SPINAL OSTEOARTHRITIS
     Dosage: 75 MG, 1X/DAY
     Route: 048
  2. LYRICA [Suspect]
     Indication: NEURALGIA
  3. NOTEN [Suspect]
     Indication: MYOCARDIAL ISCHAEMIA
     Dosage: 50 MG, 1X/DAY
     Route: 048
  4. ACETAMINOPHEN W/ CODEINE [Concomitant]
     Indication: PAIN
     Dosage: 500MG/30MG, 1-2 TABLETS EVERY 4 HOURS AS NEEDED
     Route: 048
  5. AMIODARONE HYDROCHLORIDE [Concomitant]
     Dosage: 200 MG, 1X/DAY
     Route: 048
  6. WARFARIN SODIUM [Concomitant]
     Dosage: 0.5 MG, 1X/DAY
     Route: 048
  7. WARFARIN SODIUM [Concomitant]
     Dosage: 2.5 MG, 1X/DAY
     Route: 048
  8. WARFARIN SODIUM [Concomitant]
     Dosage: 2 MG, 1X/DAY
     Route: 048
  9. PERINDOPRIL ERBUMINE [Concomitant]
     Dosage: 5 MG, 1X/DAY
     Route: 048
  10. CRESTOR [Concomitant]
     Dosage: 10 MG, 1X/DAY
     Route: 048
  11. DURAGESIC-100 [Concomitant]
     Dosage: 75 UG/HR, ONCE EVERY 3 DAYS
     Route: 062
  12. FOLIC ACID [Concomitant]
     Dosage: 0.5 MG, 1X/DAY
     Route: 048
  13. NULYTELY [Concomitant]
     Dosage: 13.125G/350.7MG/46.6MG/178.5MG, ONCE DAILY
     Route: 048
  14. PARIET [Concomitant]
     Dosage: 20 MG, 1X/DAY
     Route: 048
  15. PROGOUT [Concomitant]
     Dosage: 300 MG, 1X/DAY
     Route: 048
  16. SERETIDE [Concomitant]
     Dosage: 250MCG/50MCG 2X/DAY
     Route: 055
  17. TENORMIN [Concomitant]
     Dosage: 50 MG, 1X/DAY
     Route: 048

REACTIONS (1)
  - BRADYCARDIA [None]
